FAERS Safety Report 5115220-0 (Version None)
Quarter: 2006Q3

REPORT INFORMATION
  Report Type: 
  Country: None (occurrence: None)
  Receive Date: 20060922
  Receipt Date: 20060609
  Transmission Date: 20061208
  Serious: Yes (Other)
  Sender: FDA-Public Use
  Company Number: GXBR2006US01365

PATIENT
  Age: 61 Year
  Sex: Male
  Weight: 68.9 kg

DRUGS (2)
  1. LORATADINE [Suspect]
     Indication: SEASONAL ALLERGY
     Dosage: 10 MG, ONCE/SINGLE, ORAL
     Route: 048
     Dates: start: 20060602, end: 20060602
  2. NOVOLIN N [Concomitant]

REACTIONS (5)
  - COORDINATION ABNORMAL [None]
  - FALL [None]
  - HYPOGLYCAEMIA [None]
  - LOSS OF CONSCIOUSNESS [None]
  - URINARY INCONTINENCE [None]
